FAERS Safety Report 19494194 (Version 1)
Quarter: 2021Q3

REPORT INFORMATION
  Report Type: Report from Study
  Country: PA (occurrence: PA)
  Receive Date: 20210705
  Receipt Date: 20210705
  Transmission Date: 20211014
  Serious: Yes (Other)
  Sender: FDA-Public Use
  Company Number: PHHY2017PA047761

PATIENT
  Sex: Male

DRUGS (1)
  1. GILENYA [Suspect]
     Active Substance: FINGOLIMOD HYDROCHLORIDE
     Indication: MULTIPLE SCLEROSIS
     Dosage: 0.5 MG, QD (VIA MOUTH)
     Route: 048
     Dates: start: 20161117

REACTIONS (4)
  - Muscle spasms [Recovered/Resolved]
  - Hypoaesthesia [Unknown]
  - Tremor [Recovered/Resolved]
  - Varicose vein [Unknown]
